FAERS Safety Report 13131410 (Version 2)
Quarter: 2017Q1

REPORT INFORMATION
  Report Type: Spontaneous
  Country: JP (occurrence: JP)
  Receive Date: 20170119
  Receipt Date: 20170207
  Transmission Date: 20170428
  Serious: Yes (Death)
  Sender: FDA-Public Use
  Company Number: JP-PFIZER INC-2017022158

PATIENT
  Age: 72 Year
  Sex: Male

DRUGS (3)
  1. WARFARIN [Concomitant]
     Active Substance: WARFARIN
     Dosage: UNK
  2. ANCARON [Suspect]
     Active Substance: AMIODARONE HYDROCHLORIDE
     Indication: VENTRICULAR TACHYCARDIA
     Dosage: 200 MG, 1X/DAY
     Route: 048
  3. EDOXABAN [Concomitant]
     Active Substance: EDOXABAN TOSYLATE
     Dosage: UNK

REACTIONS (4)
  - Hepatic encephalopathy [Fatal]
  - Hepatic cirrhosis [Fatal]
  - Peritonitis bacterial [Fatal]
  - Pulmonary alveolar haemorrhage [Fatal]
